FAERS Safety Report 9410074 (Version 1)
Quarter: 2013Q3

REPORT INFORMATION
  Report Type: Spontaneous
  Country: US (occurrence: US)
  Receive Date: 20130719
  Receipt Date: 20130719
  Transmission Date: 20140515
  Serious: Yes (Other)
  Sender: FDA-Public Use
  Company Number: PHHY2013US074722

PATIENT
  Sex: Female

DRUGS (3)
  1. PREDNISONE [Suspect]
     Indication: ALLERGIC GRANULOMATOUS ANGIITIS
     Dosage: 75 MG, DAILY
     Route: 048
  2. CYCLOPHOSPHAMIDE [Concomitant]
     Indication: ALLERGIC GRANULOMATOUS ANGIITIS
     Route: 048
  3. AZATHIOPRINE [Concomitant]
     Indication: ALLERGIC GRANULOMATOUS ANGIITIS

REACTIONS (3)
  - Spinal fracture [Unknown]
  - Osteoporosis [Unknown]
  - Myopathy [Unknown]
